FAERS Safety Report 25648906 (Version 1)
Quarter: 2025Q3

REPORT INFORMATION
  Report Type: Spontaneous
  Country: US (occurrence: US)
  Receive Date: 20250806
  Receipt Date: 20250806
  Transmission Date: 20251020
  Serious: Yes (Life-Threatening, Hospitalization)
  Sender: MYLAN
  Company Number: US-MYLANLABS-2025M1065725

PATIENT
  Age: 58 Year
  Sex: Male

DRUGS (6)
  1. LENALIDOMIDE [Suspect]
     Active Substance: LENALIDOMIDE
     Indication: Plasma cell myeloma
  2. PREDNISONE [Suspect]
     Active Substance: PREDNISONE
     Indication: Pleuritic pain
  3. VORICONAZOLE [Suspect]
     Active Substance: VORICONAZOLE
     Indication: Fungal infection
  4. BORTEZOMIB [Suspect]
     Active Substance: BORTEZOMIB
     Indication: Plasma cell myeloma
  5. IBUPROFEN [Concomitant]
     Active Substance: IBUPROFEN
     Indication: Pleuritic pain
  6. IBUPROFEN [Concomitant]
     Active Substance: IBUPROFEN
     Indication: Pain in extremity

REACTIONS (2)
  - Pulmonary blastomycosis [Recovering/Resolving]
  - Drug ineffective [Unknown]
